FAERS Safety Report 4376593-X (Version None)
Quarter: 2004Q2

REPORT INFORMATION
  Report Type: 
  Country: None (occurrence: None)
  Receive Date: 20040608
  Receipt Date: 20040602
  Transmission Date: 20050107
  Serious: Yes (Hospitalization)
  Sender: FDA-Public Use
  Company Number: US-JNJFOC-20040600712

PATIENT
  Age: 64 Year
  Sex: Female

DRUGS (5)
  1. KETOCONAZOLE [Suspect]
     Indication: CERVIX CARCINOMA RECURRENT
     Dosage: 400 MG, IN 1 DAY, ORAL
     Route: 048
     Dates: start: 20040426, end: 20040501
  2. IXABEPILONE (ALL OTHER THERAPEUTIC PRODUCTS) INJECTION [Concomitant]
     Indication: CERVIX CARCINOMA RECURRENT
     Dosage: 45 MG, INJECTION
     Route: 042
     Dates: start: 20040427, end: 20040427
  3. BENADRYL [Concomitant]
  4. KYTRIL [Concomitant]
  5. CHEMOTHERAPY (ANTINEOPLASTIC AGENTS) [Concomitant]

REACTIONS (9)
  - ANAEMIA [None]
  - ASTHENIA [None]
  - DEHYDRATION [None]
  - KLEBSIELLA INFECTION [None]
  - RENAL FAILURE [None]
  - URINARY TRACT INFECTION ENTEROCOCCAL [None]
  - VAGINAL DISCHARGE [None]
  - VAGINAL HAEMORRHAGE [None]
  - VAGINAL ODOUR [None]
